FAERS Safety Report 6998661-6 (Version None)
Quarter: 2010Q3

REPORT INFORMATION
  Report Type: 
  Country: None (occurrence: None)
  Receive Date: 20100920
  Receipt Date: 20070711
  Transmission Date: 20110219
  Serious: Yes (Other)
  Sender: FDA-Public Use
  Company Number: US-ASTRAZENECA-2006UW24493

PATIENT
  Age: 13219 Day
  Sex: Female
  Weight: 49 kg

DRUGS (25)
  1. SEROQUEL [Suspect]
     Indication: BIPOLAR DISORDER
     Route: 048
     Dates: start: 20031208
  2. SEROQUEL [Suspect]
     Indication: SCHIZOPHRENIA
     Route: 048
     Dates: start: 20031208
  3. SEROQUEL [Suspect]
     Indication: DEPRESSION
     Route: 048
     Dates: start: 20031208
  4. SEROQUEL [Suspect]
     Route: 048
     Dates: end: 20040101
  5. SEROQUEL [Suspect]
     Route: 048
     Dates: end: 20040101
  6. SEROQUEL [Suspect]
     Route: 048
     Dates: end: 20040101
  7. ABILIFY [Concomitant]
  8. CLOZARIL [Concomitant]
  9. HALDOL [Concomitant]
  10. RISPERDAL [Concomitant]
  11. THORAZINE [Concomitant]
  12. ZYPREXA [Concomitant]
  13. CLONAZEPAM [Concomitant]
     Dates: start: 20031208
  14. BUPROPION HCL [Concomitant]
     Dates: start: 20041111
  15. PROMETHAZINE [Concomitant]
     Dates: start: 20041111
  16. NAPROXEN SOD [Concomitant]
     Dosage: STRENGTH: 500 TO 550 MG
     Dates: start: 20050823
  17. TRAZODONE HCL [Concomitant]
     Dates: start: 20050823
  18. CARISOPRODOL [Concomitant]
     Dates: start: 20061010
  19. FOSAMAX [Concomitant]
     Dates: start: 20061010
  20. ADVAIR DISKUS 100/50 [Concomitant]
     Dosage: 500/50 MIS
     Dates: start: 20061010
  21. ALBUTEROL [Concomitant]
     Dosage: 0.083 PERCENT NEB
     Dates: start: 20050801
  22. ALPRAZOLAM [Concomitant]
     Dates: start: 20050801
  23. AMBIEN CR [Concomitant]
     Dosage: 12.5
     Dates: start: 20070222
  24. PROCHLORPER [Concomitant]
     Dates: start: 20070222
  25. IBUPROFEN [Concomitant]
     Dates: start: 20070510

REACTIONS (3)
  - DIABETES MELLITUS [None]
  - DIABETIC COMA [None]
  - DIABETIC KETOACIDOSIS [None]
